FAERS Safety Report 18103056 (Version 3)
Quarter: 2020Q3

REPORT INFORMATION
  Report Type: Spontaneous
  Country: CZ (occurrence: CZ)
  Receive Date: 20200803
  Receipt Date: 20200811
  Transmission Date: 20201103
  Serious: Yes (Other)
  Sender: FDA-Public Use
  Company Number: CZ-MYLANLABS-2020M1068185

PATIENT
  Age: 70 Year
  Sex: Female

DRUGS (6)
  1. CARBOPLATIN. [Suspect]
     Active Substance: CARBOPLATIN
     Indication: OVARIAN CANCER RECURRENT
  2. CARBOPLATIN. [Suspect]
     Active Substance: CARBOPLATIN
     Indication: OVARIAN CANCER
     Dosage: UNK, 5CYCLE
     Route: 065
     Dates: start: 201604
  3. GEMCITABINE. [Suspect]
     Active Substance: GEMCITABINE
     Indication: OVARIAN CANCER
     Dosage: UNK, 5 CYCLE
     Route: 065
     Dates: start: 201604
  4. GEMCITABINE. [Suspect]
     Active Substance: GEMCITABINE
     Indication: OVARIAN CANCER RECURRENT
  5. BEVACIZUMAB. [Suspect]
     Active Substance: BEVACIZUMAB
     Indication: OVARIAN CANCER
     Dosage: UNK, 5 CYCLE
     Route: 065
     Dates: start: 201604
  6. BEVACIZUMAB. [Suspect]
     Active Substance: BEVACIZUMAB
     Indication: OVARIAN CANCER RECURRENT

REACTIONS (6)
  - Myelosuppression [Unknown]
  - Ovarian cancer [Not Recovered/Not Resolved]
  - Neurotoxicity [Unknown]
  - Carbohydrate antigen 125 increased [Recovering/Resolving]
  - Malignant neoplasm progression [Not Recovered/Not Resolved]
  - Myelosuppression [Unknown]

NARRATIVE: CASE EVENT DATE: 2016
